FAERS Safety Report 8974869 (Version 7)
Quarter: 2013Q3

REPORT INFORMATION
  Report Type: Report from Study
  Country: DE (occurrence: DE)
  Receive Date: 20121219
  Receipt Date: 20130815
  Transmission Date: 20140515
  Serious: Yes (Hospitalization)
  Sender: FDA-Public Use
  Company Number: DE-EISAI INC-E2090-02457-CLI-DE

PATIENT
  Age: 55 Year
  Sex: Male
  Weight: 89 kg

DRUGS (15)
  1. ZONEGRAN [Suspect]
     Indication: PARTIAL SEIZURES
     Dosage: 50 MG DAILY IN TWO DIVIDED DOSES
     Route: 048
     Dates: start: 20120907, end: 20120915
  2. ZONEGRAN [Suspect]
     Dosage: 100 MG DAILY
     Route: 048
     Dates: start: 20120916, end: 20120922
  3. ZONEGRAN [Suspect]
     Dosage: 150 MG DAILY
     Route: 048
     Dates: start: 20120923, end: 20120929
  4. ZONEGRAN [Suspect]
     Dosage: 200 MG DAILY
     Route: 048
     Dates: start: 20120930, end: 20121016
  5. ZONEGRAN [Suspect]
     Dosage: 250 MG DAILY
     Route: 048
     Dates: start: 20121017, end: 20121030
  6. ZONEGRAN [Suspect]
     Dosage: 300 MG DAILY
     Route: 048
     Dates: start: 20121031, end: 20121127
  7. ZONEGRAN [Suspect]
     Dosage: 400 MG DAILY
     Route: 048
     Dates: start: 20121128, end: 20121216
  8. ZONEGRAN [Suspect]
     Dosage: 600 MG DAILY
     Route: 048
     Dates: start: 20121217, end: 20130215
  9. ZONEGRAN [Suspect]
     Dosage: 700 MG DAILY
     Route: 048
     Dates: start: 20130216, end: 20130313
  10. ZONEGRAN [Suspect]
     Dosage: 400 MG DAILY
     Route: 048
     Dates: start: 20130314, end: 20130422
  11. CARBAMAZEPINE [Concomitant]
     Indication: PARTIAL SEIZURES
     Dosage: 400 MG
     Route: 048
     Dates: start: 20121114
  12. RAMIPRIL [Concomitant]
     Indication: HYPERTENSION
     Dosage: 2.5 MG
     Route: 048
  13. ASS [Concomitant]
     Indication: CEREBROVASCULAR ACCIDENT PROPHYLAXIS
     Dosage: 100 MG
     Route: 048
  14. RANITIDINE [Concomitant]
     Indication: COLITIS ULCERATIVE
     Dosage: 300 MG
     Route: 048
  15. SULFASALZINE [Concomitant]
     Indication: COLITIS ULCERATIVE
     Dosage: 200 MG
     Route: 048

REACTIONS (3)
  - Jaw fracture [Recovered/Resolved]
  - Ear injury [Recovered/Resolved]
  - Skin injury [Recovered/Resolved]
